FAERS Safety Report 21466169 (Version 11)
Quarter: 2025Q1

REPORT INFORMATION
  Report Type: Spontaneous
  Country: US (occurrence: US)
  Receive Date: 20221017
  Receipt Date: 20250326
  Transmission Date: 20250409
  Serious: Yes (Other)
  Sender: PFIZER
  Company Number: US-PFIZER INC-PV202200082652

PATIENT
  Age: 56 Year
  Sex: Male

DRUGS (13)
  1. XELJANZ XR [Suspect]
     Active Substance: TOFACITINIB CITRATE
     Dosage: 11 MG, 1X/DAY
     Route: 048
  2. XELJANZ XR [Suspect]
     Active Substance: TOFACITINIB CITRATE
  3. PRAVASTATIN [Concomitant]
     Active Substance: PRAVASTATIN
  4. DONEPEZIL [Concomitant]
     Active Substance: DONEPEZIL
  5. ZETIA [Concomitant]
     Active Substance: EZETIMIBE
  6. MINOCYCLINE [Concomitant]
     Active Substance: MINOCYCLINE HYDROCHLORIDE
  7. PHENOBARBITAL [Concomitant]
     Active Substance: PHENOBARBITAL
  8. TAMSULOSIN [Concomitant]
     Active Substance: TAMSULOSIN
  9. RAMIPRIL [Concomitant]
     Active Substance: RAMIPRIL
  10. HYDROCHLOROTHIAZIDE [Concomitant]
     Active Substance: HYDROCHLOROTHIAZIDE
  11. KEPPRA [Concomitant]
     Active Substance: LEVETIRACETAM
  12. TYLENOL [Concomitant]
     Active Substance: ACETAMINOPHEN
  13. COLACE [Concomitant]
     Active Substance: DOCUSATE SODIUM

REACTIONS (8)
  - Cerebrovascular accident [Unknown]
  - Hip arthroplasty [Unknown]
  - Knee arthroplasty [Unknown]
  - Cataract [Unknown]
  - Eye operation [Unknown]
  - Product dose omission issue [Unknown]
  - Pain [Unknown]
  - Gait inability [Unknown]

NARRATIVE: CASE EVENT DATE: 20070101
